FAERS Safety Report 16969517 (Version 1)
Quarter: 2019Q4

REPORT INFORMATION
  Report Type: Spontaneous
  Country: CA (occurrence: CA)
  Receive Date: 20191029
  Receipt Date: 20191029
  Transmission Date: 20200122
  Serious: Yes (Other)
  Sender: FDA-Public Use
  Company Number: CA-PFIZER INC-2019460892

PATIENT
  Age: 18 Year
  Sex: Female
  Weight: 40 kg

DRUGS (1)
  1. ALESSE 28 [Suspect]
     Active Substance: ETHINYL ESTRADIOL\LEVONORGESTREL
     Dosage: 1 DF, 1X/DAY
     Route: 048

REACTIONS (1)
  - Genital haemorrhage [Unknown]
